FAERS Safety Report 7729500-3 (Version None)
Quarter: 2011Q3

REPORT INFORMATION
  Report Type: 
  Country: None (occurrence: None)
  Receive Date: 20110831
  Receipt Date: 20110831
  Transmission Date: 20111222
  Serious: Yes (Hospitalization)
  Sender: FDA-Public Use
  Company Number: None

PATIENT
  Age: 66 Year
  Sex: Male
  Weight: 85.8 kg

DRUGS (2)
  1. PROPOFOL [Suspect]
     Indication: INDUCTION OF ANAESTHESIA
     Dosage: 150 MG ONCE IV
     Route: 042
     Dates: start: 20110825, end: 20110825
  2. MIDAZOLAM HCL [Suspect]
     Indication: INDUCTION OF ANAESTHESIA
     Dosage: 2 MG ONCE IV
     Route: 042

REACTIONS (2)
  - BRADYCARDIA [None]
  - HYPOTENSION [None]
